FAERS Safety Report 4667167-1 (Version None)
Quarter: 2005Q2

REPORT INFORMATION
  Report Type: 
  Country: None (occurrence: None)
  Receive Date: 20050520
  Receipt Date: 20040708
  Transmission Date: 20051028
  Serious: Yes (Other)
  Sender: FDA-Public Use
  Company Number: PHEH2004US07458

PATIENT
  Age: 52 Year
  Sex: Female

DRUGS (2)
  1. ZOMETA [Suspect]
     Indication: BREAST CANCER METASTATIC
     Dosage: 4 MG, QMO
     Route: 042
     Dates: start: 20021201
  2. ZOLADEX [Concomitant]
     Indication: HORMONE SUPPRESSION THERAPY
     Dosage: 10.8 MG, Q3MO
     Dates: start: 20021201

REACTIONS (3)
  - BONE TRIMMING [None]
  - MOUTH ULCERATION [None]
  - OSTEONECROSIS [None]
